FAERS Safety Report 18009916 (Version 2)
Quarter: 2020Q3

REPORT INFORMATION
  Report Type: Report from Study
  Country: US (occurrence: US)
  Receive Date: 20200711
  Receipt Date: 20200801
  Transmission Date: 20201103
  Serious: No
  Sender: FDA-Public Use
  Company Number: NVSC2020US195216

PATIENT
  Sex: Male

DRUGS (1)
  1. ENTRESTO [Suspect]
     Active Substance: SACUBITRIL\VALSARTAN
     Indication: CARDIAC FAILURE
     Dosage: 24.26 MG, BID
     Route: 048
     Dates: start: 202005

REACTIONS (5)
  - Liver disorder [Unknown]
  - Dizziness [Unknown]
  - Urine output increased [Unknown]
  - Blood pressure fluctuation [Unknown]
  - Weight decreased [Unknown]
